FAERS Safety Report 13738446 (Version 1)
Quarter: 2017Q3

REPORT INFORMATION
  Report Type: Spontaneous
  Country: US (occurrence: US)
  Receive Date: 20170710
  Receipt Date: 20170710
  Transmission Date: 20171127
  Serious: No
  Sender: FDA-Public Use
  Company Number: US-SAOL THERAPEUTICS-2016SAO01132

PATIENT
  Sex: Male

DRUGS (3)
  1. BUPIVACAINE. [Suspect]
     Active Substance: BUPIVACAINE
     Route: 037
  2. BACLOFEN. [Suspect]
     Active Substance: BACLOFEN
     Indication: MUSCLE SPASTICITY
     Route: 037
  3. DILAUDID [Suspect]
     Active Substance: HYDROMORPHONE HYDROCHLORIDE
     Dosage: 9 MG/ML, UNK
     Route: 037

REACTIONS (3)
  - Device malfunction [Unknown]
  - Pain [Unknown]
  - Nausea [Unknown]
